FAERS Safety Report 6471253-3 (Version None)
Quarter: 2009Q4

REPORT INFORMATION
  Report Type: 
  Country: None (occurrence: None)
  Receive Date: 20091203
  Receipt Date: 20080624
  Transmission Date: 20100525
  Serious: Yes (Life-Threatening, Hospitalization, Disabling)
  Sender: FDA-Public Use
  Company Number: ZA-ELI_LILLY_AND_COMPANY-ZA200802000103

PATIENT
  Sex: Female
  Weight: 33.56 kg

DRUGS (15)
  1. CAPASTAT SULFATE [Suspect]
     Indication: TUBERCULOSIS
     Dosage: 1000 MG, DAILY (1/D)
     Route: 030
     Dates: start: 20070410, end: 20071121
  2. CAPASTAT SULFATE [Suspect]
     Dosage: 1000 MG, 3/W
     Route: 030
     Dates: start: 20071121, end: 20071219
  3. TERIZIDONE [Concomitant]
     Indication: TUBERCULOSIS
     Dosage: 750 MG, DAILY (1/D)
     Route: 065
  4. P.A.S. [Concomitant]
     Indication: TUBERCULOSIS
     Dosage: 4 G, 2/D
     Route: 048
  5. PYRAZINAMIDE [Concomitant]
     Indication: TUBERCULOSIS
     Dosage: 1.5 G, DAILY (1/D)
     Route: 048
  6. EFAVIRENZ [Concomitant]
     Indication: HIV INFECTION
     Dosage: 600 MG, DAILY (1/D)
     Route: 048
  7. LAMIVUDINE [Concomitant]
     Indication: HIV INFECTION
     Dosage: UNK UNK, 2/D
     Route: 048
     Dates: start: 20060201
  8. ELTROXIN [Concomitant]
     Indication: HYPOTHYROIDISM
     Dosage: 125 UG, DAILY (1/D)
     Route: 048
     Dates: start: 20060201
  9. PYRIDOXINE [Concomitant]
     Dosage: 150 MG, DAILY (1/D)
     Route: 048
  10. DAPSONE [Concomitant]
     Dosage: 100 MG, DAILY (1/D)
     Route: 048
  11. ZIDOVUDINE [Concomitant]
     Indication: HIV INFECTION
     Dosage: 300 MG, 2/D
     Route: 065
     Dates: start: 20060201
  12. FLUOXETINE [Concomitant]
     Indication: DEPRESSION
     Dosage: 20 MG, DAILY (1/D)
     Route: 048
  13. PREMARIN [Concomitant]
     Indication: MENOPAUSE
     Dosage: 0.625 MG, DAILY (1/D)
     Route: 065
  14. DAPSON [Concomitant]
     Dosage: 100 MG, DAILY (1/D)
     Route: 065
  15. IBRUPROFEN [Concomitant]
     Dosage: UNK, UNKNOWN
     Route: 065

REACTIONS (3)
  - DEHYDRATION [None]
  - HYPOKALAEMIA [None]
  - RENAL FAILURE [None]
